FAERS Safety Report 7433630-3 (Version None)
Quarter: 2011Q2

REPORT INFORMATION
  Report Type: 
  Country: None (occurrence: None)
  Receive Date: 20110422
  Receipt Date: 20110420
  Transmission Date: 20111010
  Serious: Yes (Hospitalization)
  Sender: FDA-Public Use
  Company Number: IT-MERCK-1103ITA00045

PATIENT
  Age: 44 Year
  Sex: Male

DRUGS (5)
  1. CYCLOSPORINE [Concomitant]
     Route: 048
     Dates: start: 20101207, end: 20110211
  2. DELORAZEPAM [Concomitant]
     Route: 048
  3. ZOCOR [Suspect]
     Indication: HYPERCHOLESTEROLAEMIA
     Route: 048
     Dates: start: 20110119, end: 20110211
  4. LEVOSULPIRIDE [Concomitant]
     Route: 048
  5. PAROXETINE HYDROCHLORIDE [Concomitant]
     Route: 048

REACTIONS (3)
  - CHROMATURIA [None]
  - MUSCLE TIGHTNESS [None]
  - MYALGIA [None]
